FAERS Safety Report 13034720 (Version 1)
Quarter: 2016Q4

REPORT INFORMATION
  Report Type: Spontaneous
  Country: GB (occurrence: GB)
  Receive Date: 20161216
  Receipt Date: 20161216
  Transmission Date: 20170207
  Serious: Yes (Hospitalization)
  Sender: FDA-Public Use
  Company Number: GB-GLAXOSMITHKLINE-GB2016GSK186268

PATIENT
  Age: 46 Year
  Sex: Female
  Weight: 101 kg

DRUGS (1)
  1. TAZAROTENE [Suspect]
     Active Substance: TAZAROTENE
     Indication: DERMATITIS
     Dosage: 1 DF, UNK
     Route: 061
     Dates: start: 20161114, end: 20161118

REACTIONS (5)
  - Wound secretion [Not Recovered/Not Resolved]
  - Skin maceration [Not Recovered/Not Resolved]
  - Skin exfoliation [Not Recovered/Not Resolved]
  - Contusion [Not Recovered/Not Resolved]
  - Skin burning sensation [Not Recovered/Not Resolved]

NARRATIVE: CASE EVENT DATE: 20161116
